FAERS Safety Report 5921598-8 (Version None)
Quarter: 2008Q4

REPORT INFORMATION
  Report Type: 
  Country: None (occurrence: None)
  Receive Date: 20081016
  Receipt Date: 20081016
  Transmission Date: 20090506
  Serious: Yes (Hospitalization)
  Sender: FDA-Public Use
  Company Number: None

PATIENT
  Age: 53 Year
  Sex: Male
  Weight: 94.3482 kg

DRUGS (2)
  1. TRICOR [Suspect]
     Indication: HYPERTRIGLYCERIDAEMIA
     Dosage: 145 MG QD PO
     Route: 048
     Dates: start: 20060914, end: 20080320
  2. FISH OIL (OMACOR) [Concomitant]

REACTIONS (1)
  - PANCREATITIS ACUTE [None]
